FAERS Safety Report 13958996 (Version 1)
Quarter: 2017Q3

REPORT INFORMATION
  Report Type: Spontaneous
  Country: US (occurrence: US)
  Receive Date: 20170912
  Receipt Date: 20170912
  Transmission Date: 20171128
  Serious: No
  Sender: FDA-Public Use
  Company Number: US-JNJFOC-20170805569

PATIENT
  Age: 37 Year
  Sex: Male
  Weight: 68.49 kg

DRUGS (2)
  1. ZYRTEC [Suspect]
     Active Substance: CETIRIZINE HYDROCHLORIDE
     Indication: MULTIPLE ALLERGIES
     Dosage: 1 TABLET IN A DAY, A TOTAL OF 4 TABLETS.??DISSOLVE IN MOUTH OR SWALLOWED WHOLE
     Route: 048
     Dates: start: 20170628, end: 20170803
  2. ZYRTEC [Suspect]
     Active Substance: CETIRIZINE HYDROCHLORIDE
     Route: 048

REACTIONS (3)
  - Product physical issue [Unknown]
  - Drug ineffective [Unknown]
  - Wrong technique in product usage process [Unknown]
